FAERS Safety Report 18812972 (Version 1)
Quarter: 2021Q1

REPORT INFORMATION
  Report Type: Spontaneous
  Country: US (occurrence: US)
  Receive Date: 20210131
  Receipt Date: 20210131
  Transmission Date: 20210419
  Serious: Yes (Hospitalization, Other)
  Sender: FDA-Public Use
  Company Number: US-PURDUE-USA-2021-0200729

PATIENT
  Age: 55 Year
  Sex: Female

DRUGS (1)
  1. HYSINGLA ER [Suspect]
     Active Substance: HYDROCODONE BITARTRATE
     Indication: PAIN MANAGEMENT
     Dosage: 40 MG, DAILY
     Route: 048
     Dates: start: 2017

REACTIONS (16)
  - Dysgeusia [Unknown]
  - Fall [Unknown]
  - Dizziness [Unknown]
  - Nausea [Unknown]
  - Hypotension [Unknown]
  - Inadequate analgesia [Unknown]
  - Disease progression [Unknown]
  - Fatigue [Unknown]
  - Anaphylactic reaction [Recovered/Resolved]
  - Urticaria [Unknown]
  - Adrenal insufficiency [Unknown]
  - Food allergy [Not Recovered/Not Resolved]
  - Laboratory test abnormal [Unknown]
  - Weight decreased [Unknown]
  - Paraesthesia [Unknown]
  - Constipation [Unknown]

NARRATIVE: CASE EVENT DATE: 20201130
